FAERS Safety Report 19332398 (Version 1)
Quarter: 2021Q2

REPORT INFORMATION
  Report Type: Spontaneous
  Country: NL (occurrence: NL)
  Receive Date: 20210529
  Receipt Date: 20210529
  Transmission Date: 20210717
  Serious: Yes (Hospitalization, Other)
  Sender: FDA-Public Use
  Company Number: NL-AUROBINDO-AUR-APL-2021-022468

PATIENT
  Age: 28 Year
  Sex: Female

DRUGS (2)
  1. VALPROATE SODIUM. [Suspect]
     Active Substance: VALPROATE SODIUM
     Indication: SEIZURE
     Dosage: 1300 MILLIGRAM, DAILY
     Route: 065
     Dates: start: 1986
  2. VALPROATE SODIUM. [Suspect]
     Active Substance: VALPROATE SODIUM
     Dosage: 1600 MILLIGRAM, DAILY
     Route: 065
     Dates: start: 1986

REACTIONS (1)
  - Cutaneous vasculitis [Recovered/Resolved]
